FAERS Safety Report 5013276-7 (Version None)
Quarter: 2006Q2

REPORT INFORMATION
  Report Type: 
  Country: None (occurrence: None)
  Receive Date: 20060530
  Receipt Date: 20060404
  Transmission Date: 20061013
  Serious: No
  Sender: FDA-Public Use
  Company Number: US-GLAXOSMITHKLINE-A0600362A

PATIENT
  Age: 48 Year
  Sex: Female

DRUGS (4)
  1. WELLBUTRIN XL [Suspect]
     Indication: DEPRESSION
     Route: 048
  2. NEXIUM [Concomitant]
  3. TRAZODONE HCL [Concomitant]
  4. ALDACTONE [Concomitant]

REACTIONS (6)
  - DISTURBANCE IN ATTENTION [None]
  - DIZZINESS [None]
  - MEMORY IMPAIRMENT [None]
  - MENTAL STATUS CHANGES [None]
  - SINUSITIS [None]
  - TINNITUS [None]
